FAERS Safety Report 10011765 (Version 2)
Quarter: 2014Q2

REPORT INFORMATION
  Report Type: Spontaneous
  Country: FR (occurrence: FR)
  Receive Date: 20140314
  Receipt Date: 20140428
  Transmission Date: 20141212
  Serious: Yes (Hospitalization, Other)
  Sender: FDA-Public Use
  Company Number: FR-BRISTOL-MYERS SQUIBB COMPANY-20382206

PATIENT
  Age: 18 Year
  Sex: Male

DRUGS (8)
  1. ABILIFY [Suspect]
     Dosage: 1DF: UP TO 30MG,JAN10-JAN14,INITIAL DOSE: 10MG,DOSE DECREASED TO 5MG
     Route: 048
     Dates: start: 201001, end: 201401
  2. RISPERDAL [Suspect]
     Dosage: 2009-JAN10
     Dates: start: 2009, end: 201010
  3. LOXAPAC [Suspect]
     Route: 048
     Dates: start: 2009, end: 201212
  4. DEROXAT [Concomitant]
     Indication: SOCIAL AVOIDANT BEHAVIOUR
     Dosage: SEP-2008, DOSE INCREASED TO 40MG DAILY
     Dates: start: 2008
  5. DEROXAT [Concomitant]
     Indication: DEPRESSION
     Dosage: SEP-2008, DOSE INCREASED TO 40MG DAILY
     Dates: start: 2008
  6. DEROXAT [Concomitant]
     Indication: SUICIDAL IDEATION
     Dosage: SEP-2008, DOSE INCREASED TO 40MG DAILY
     Dates: start: 2008
  7. SERESTA [Concomitant]
  8. CANNABIS [Concomitant]
     Dates: end: 201212

REACTIONS (1)
  - Impulse-control disorder [Recovered/Resolved]
